FAERS Safety Report 8776402 (Version 1)
Quarter: 2012Q4

REPORT INFORMATION
  Report Type: 
  Country: SA (occurrence: SA)
  Receive Date: 20120910
  Receipt Date: 20120910
  Transmission Date: 20130627
  Serious: Yes (Death)
  Sender: FDA-Public Use
  Company Number: PHHY2012SA078176

PATIENT

DRUGS (4)
  1. CICLOSPORIN [Suspect]
     Indication: PROPHYLAXIS AGAINST GRAFT VERSUS HOST DISEASE
     Dosage: 1.5 mg/kg, BID
     Route: 042
  2. CICLOSPORIN [Suspect]
     Dosage: 5 mg/kg, BID
  3. OTHER BLOOD PRODUCTS [Concomitant]
  4. ANTIFUNGAL DRUGS [Concomitant]
     Indication: ANTIFUNGAL PROPHYLAXIS

REACTIONS (1)
  - Engraft failure [Fatal]
